FAERS Safety Report 8263730-X (Version None)
Quarter: 2012Q2

REPORT INFORMATION
  Report Type: 
  Country: None (occurrence: None)
  Receive Date: 20120405
  Receipt Date: 20120402
  Transmission Date: 20120825
  Serious: Yes (Hospitalization)
  Sender: FDA-Public Use
  Company Number: DK-ROCHE-704835

PATIENT
  Sex: Female
  Weight: 64 kg

DRUGS (3)
  1. FENYTOIN [Concomitant]
     Dates: start: 19980101
  2. BLINDED METHOTREXATE [Suspect]
     Indication: RHEUMATOID ARTHRITIS
     Dosage: DATE OF LAST DOSE PRIOR TO SAE: 22 APRIL 2010
     Route: 048
  3. ACTEMRA [Suspect]
     Indication: RHEUMATOID ARTHRITIS
     Dosage: PERMANENTLY DISCONTINUED
     Route: 042
     Dates: start: 20100422, end: 20100422

REACTIONS (1)
  - EPILEPSY [None]
